FAERS Safety Report 4549371-6 (Version None)
Quarter: 2004Q4

REPORT INFORMATION
  Report Type: 
  Country: None (occurrence: None)
  Receive Date: 20041230
  Receipt Date: 20040701
  Transmission Date: 20050328
  Serious: Yes (Hospitalization, Other)
  Sender: FDA-Public Use
  Company Number: 04-07-0952

PATIENT
  Age: 34 Year
  Sex: Male
  Weight: 93.441 kg

DRUGS (2)
  1. CLOZAPINE [Suspect]
     Indication: SCHIZOPHRENIA, UNDIFFERENTIATED TYPE
     Dosage: 100MG QD ORAL
     Route: 048
     Dates: start: 20040128, end: 20040520
  2. DIVALPROEX SODIUM [Concomitant]

REACTIONS (2)
  - CONVULSION [None]
  - MENTAL DISORDER [None]
